FAERS Safety Report 6774913-X (Version None)
Quarter: 2010Q2

REPORT INFORMATION
  Report Type: 
  Country: None (occurrence: None)
  Receive Date: 20100616
  Receipt Date: 20100616
  Transmission Date: 20101027
  Serious: No
  Sender: FDA-Public Use
  Company Number: None

PATIENT
  Age: 59 Year
  Sex: Female
  Weight: 88.4514 kg

DRUGS (2)
  1. TRAMADOL HCL [Suspect]
     Indication: BACK PAIN
     Dosage: 25 MG  2 TIMES A DAY
     Dates: start: 20100330, end: 20100402
  2. TRAMADOL HCL [Suspect]
     Indication: FIBROMYALGIA
     Dosage: 25 MG  2 TIMES A DAY
     Dates: start: 20100330, end: 20100402

REACTIONS (8)
  - ACTIVITIES OF DAILY LIVING IMPAIRED [None]
  - DYSPNOEA [None]
  - FATIGUE [None]
  - FEELING ABNORMAL [None]
  - IMPAIRED DRIVING ABILITY [None]
  - MOOD ALTERED [None]
  - PRODUCT SUBSTITUTION ISSUE [None]
  - SINUS CONGESTION [None]
